FAERS Safety Report 9448760 (Version 4)
Quarter: 2018Q2

REPORT INFORMATION
  Report Type: Spontaneous
  Country: DK (occurrence: DK)
  Receive Date: 20130808
  Receipt Date: 20180417
  Transmission Date: 20180711
  Serious: Yes (Death, Life-Threatening, Hospitalization)
  Sender: FDA-Public Use
  Company Number: DK-ASTRAZENECA-2013SE61486

PATIENT
  Age: 10012 Day
  Sex: Male
  Weight: 125 kg

DRUGS (1)
  1. SEROQUEL XR [Suspect]
     Active Substance: QUETIAPINE FUMARATE
     Indication: ANXIETY DISORDER
     Dosage: 150 MG 1-2 TIMES PER DAY, AN ADDITIONAL 25 MG MAY BE ADDED FOR THE NIGHT; LATER INCREASED UP TO 4...
     Route: 048
     Dates: start: 20121103, end: 20130722

REACTIONS (7)
  - Shock [Fatal]
  - Pancreatitis necrotising [Fatal]
  - Hypertriglyceridaemia [Fatal]
  - Diabetic ketoacidosis [Fatal]
  - Off label use [Unknown]
  - Multiple organ dysfunction syndrome [Fatal]
  - Product use in unapproved indication [Unknown]

NARRATIVE: CASE EVENT DATE: 20130721
